FAERS Safety Report 6245877-2 (Version None)
Quarter: 2009Q2

REPORT INFORMATION
  Report Type: 
  Country: None (occurrence: None)
  Receive Date: 20090626
  Receipt Date: 20090623
  Transmission Date: 20091009
  Serious: Yes (Other)
  Sender: FDA-Public Use
  Company Number: US-ASTRAZENECA-2007UW12370

PATIENT
  Age: 71 Year
  Sex: Female
  Weight: 79.4 kg

DRUGS (2)
  1. ARIMIDEX [Suspect]
     Indication: BREAST CANCER
     Route: 048
     Dates: start: 20061001
  2. FOSAMAX [Concomitant]

REACTIONS (9)
  - ARTHRALGIA [None]
  - BLOOD UREA INCREASED [None]
  - BONE PAIN [None]
  - DYSPNOEA [None]
  - HOT FLUSH [None]
  - INCREASED TENDENCY TO BRUISE [None]
  - MYALGIA [None]
  - SPINAL COLUMN STENOSIS [None]
  - WRIST FRACTURE [None]
